FAERS Safety Report 6142083-7 (Version None)
Quarter: 2009Q1

REPORT INFORMATION
  Report Type: 
  Country: None (occurrence: None)
  Receive Date: 20090331
  Receipt Date: 20090331
  Transmission Date: 20090719
  Serious: Yes (Other)
  Sender: FDA-Public Use
  Company Number: None

PATIENT
  Sex: Female
  Weight: 48.5349 kg

DRUGS (1)
  1. MEDROL [Suspect]
     Indication: ARTHROPOD BITE
     Dosage: 5,4,3,2,1 5-7 DAYS
     Dates: start: 20070904, end: 20070909

REACTIONS (6)
  - CATARACT [None]
  - DIARRHOEA [None]
  - FEELING ABNORMAL [None]
  - IMPAIRED DRIVING ABILITY [None]
  - MYODESOPSIA [None]
  - TYPE 2 DIABETES MELLITUS [None]
